FAERS Safety Report 7277606-8 (Version None)
Quarter: 2011Q1

REPORT INFORMATION
  Report Type: 
  Country: None (occurrence: None)
  Receive Date: 20110202
  Receipt Date: 20110202
  Transmission Date: 20110831
  Serious: No
  Sender: FDA-Public Use
  Company Number: None

PATIENT
  Age: 48 Year
  Sex: Female
  Weight: 70.3075 kg

DRUGS (1)
  1. ACTONEL [Suspect]
     Indication: BONE DENSITY DECREASED
     Dosage: 1 TABLET WEEKLY BUCCAL
     Route: 002
     Dates: start: 20110113, end: 20110113

REACTIONS (6)
  - ARTHRALGIA [None]
  - NERVOUSNESS [None]
  - IRRITABILITY [None]
  - MALAISE [None]
  - ABDOMINAL PAIN UPPER [None]
  - OEDEMA PERIPHERAL [None]
